FAERS Safety Report 20046660 (Version 1)
Quarter: 2021Q4

REPORT INFORMATION
  Report Type: Spontaneous
  Country: CN (occurrence: CN)
  Receive Date: 20211109
  Receipt Date: 20211109
  Transmission Date: 20220303
  Serious: Yes (Other)
  Sender: FDA-Public Use
  Company Number: CN-SPECGX-T202102465

PATIENT
  Age: 74 Year
  Sex: Female

DRUGS (3)
  1. ACETAMINOPHEN\OXYCODONE HYDROCHLORIDE [Suspect]
     Active Substance: ACETAMINOPHEN\OXYCODONE HYDROCHLORIDE
     Indication: Analgesic therapy
     Dosage: 5 MILLIGRAM, BID
     Route: 048
     Dates: start: 20211024, end: 20211025
  2. GABAPENTIN [Concomitant]
     Active Substance: GABAPENTIN
     Indication: Back pain
     Dosage: UNK
     Route: 065
     Dates: start: 202110, end: 20211024
  3. LOXOPROFEN [Concomitant]
     Active Substance: LOXOPROFEN
     Indication: Back pain
     Dosage: UNK
     Route: 065
     Dates: start: 202110, end: 20211024

REACTIONS (5)
  - Discomfort [Recovered/Resolved]
  - Cold sweat [Recovered/Resolved]
  - Dizziness [Recovered/Resolved]
  - Nausea [Recovered/Resolved]
  - Vomiting [Recovered/Resolved]

NARRATIVE: CASE EVENT DATE: 20211024
